FAERS Safety Report 21401398 (Version 10)
Quarter: 2024Q4

REPORT INFORMATION
  Report Type: Report from Study
  Country: JP (occurrence: JP)
  Receive Date: 20221003
  Receipt Date: 20241115
  Transmission Date: 20250115
  Serious: Yes (Other)
  Sender: TAKEDA
  Company Number: JP-TAKEDA-2022TJP052114

PATIENT
  Age: 11 Year
  Sex: Female
  Weight: 23 kg

DRUGS (17)
  1. TEDUGLUTIDE [Suspect]
     Active Substance: TEDUGLUTIDE
     Indication: Short-bowel syndrome
     Dosage: UNK
     Dates: start: 20220328, end: 20220525
  2. TEDUGLUTIDE [Suspect]
     Active Substance: TEDUGLUTIDE
     Dosage: UNK
     Dates: start: 20220604, end: 20220831
  3. TEDUGLUTIDE [Suspect]
     Active Substance: TEDUGLUTIDE
     Dosage: UNK MILLIGRAM/KILOGRAM
     Dates: start: 20220917, end: 20221023
  4. TEDUGLUTIDE [Suspect]
     Active Substance: TEDUGLUTIDE
     Dosage: 0.05 MILLIGRAM/KILOGRAM
  5. URSO [Concomitant]
     Active Substance: URSODIOL
     Indication: Short-bowel syndrome
     Dosage: UNK
  6. MIYA-BM [Concomitant]
     Active Substance: CLOSTRIDIUM BUTYRICUM SPORES STRAIN M-55
     Indication: Short-bowel syndrome
     Dosage: UNK
  7. AMINO ACIDS\DEXTROSE\ELECTROLYTES NOS\MINERALS\VITAMINS [Concomitant]
     Active Substance: AMINO ACIDS\DEXTROSE\ELECTROLYTES NOS\MINERALS\VITAMINS
     Indication: Short-bowel syndrome
     Dosage: UNK
  8. ASELEND [Concomitant]
     Indication: Short-bowel syndrome
     Dosage: UNK
  9. LEVOCARNITINE HYDROCHLORIDE [Concomitant]
     Active Substance: LEVOCARNITINE HYDROCHLORIDE
     Indication: Short-bowel syndrome
     Dosage: UNK
  10. CLARITIN [Concomitant]
     Active Substance: LORATADINE
     Dosage: UNK
  11. SODIUM CHLORIDE [Concomitant]
     Active Substance: SODIUM CHLORIDE
     Dosage: UNK
  12. EMLA [Concomitant]
     Active Substance: LIDOCAINE\PRILOCAINE
     Dosage: UNK
  13. SOYBEAN OIL [Concomitant]
     Active Substance: SOYBEAN OIL
     Indication: Short-bowel syndrome
     Dosage: UNK
  14. ELNEOPA NF NO.1 [Concomitant]
     Dosage: UNK
  15. SODIUM CHLORIDE [Concomitant]
     Active Substance: SODIUM CHLORIDE
     Dosage: UNK
  16. LEVOCARNITINE [Concomitant]
     Active Substance: LEVOCARNITINE
     Dosage: UNK
  17. SOLITA-T NO.2 [Concomitant]
     Indication: Short-bowel syndrome
     Dosage: UNK

REACTIONS (8)
  - Haematochezia [Recovered/Resolved]
  - Erythema nodosum [Recovering/Resolving]
  - Erythema nodosum [Recovering/Resolving]
  - Erythema nodosum [Recovering/Resolving]
  - Abdominal distension [Recovered/Resolved]
  - Mucosal prolapse syndrome [Recovering/Resolving]
  - Overdose [Recovered/Resolved]
  - Underdose [Recovered/Resolved]

NARRATIVE: CASE EVENT DATE: 20220328
